FAERS Safety Report 8665949 (Version 5)
Quarter: 2012Q4

REPORT INFORMATION
  Report Type: 
  Country: GB (occurrence: GB)
  Receive Date: 20120716
  Receipt Date: 20120921
  Transmission Date: 20130627
  Serious: Yes (Life-Threatening, Other)
  Sender: FDA-Public Use
  Company Number: GB-MYLANLABS-2012S1013354

PATIENT
  Age: 49 Year
  Sex: Female

DRUGS (8)
  1. MIRTAZAPINE [Suspect]
     Indication: DEPRESSIVE SYMPTOM
     Route: 048
     Dates: start: 2006, end: 20120121
  2. TOPIRAMATE [Suspect]
     Indication: PSYCHOTIC DISORDER
     Route: 048
     Dates: start: 2007, end: 20120121
  3. TOPIRAMATE [Suspect]
     Indication: SCHIZOPHRENIA
     Route: 048
     Dates: start: 2007, end: 20120121
  4. CLOZARIL [Suspect]
     Indication: SCHIZOPHRENIA
     Route: 048
     Dates: start: 20060815, end: 20120109
  5. CLOZARIL [Suspect]
     Indication: SCHIZOPHRENIA
     Route: 048
     Dates: start: 20120112, end: 20120117
  6. CLOZARIL [Suspect]
     Indication: SCHIZOPHRENIA
     Route: 048
  7. ZOPICLONE [Concomitant]
     Indication: SLEEP DISORDER
     Route: 048
  8. QUETIAPINE [Concomitant]
     Indication: TOOTH INFECTION
     Dates: start: 2007

REACTIONS (9)
  - Eosinophil count decreased [Unknown]
  - Injury [Unknown]
  - Neutropenia [Recovered/Resolved]
  - Platelet count decreased [Recovered/Resolved]
  - Road traffic accident [Recovered/Resolved]
  - Scratch [Unknown]
  - Toothache [Recovered/Resolved]
  - Tooth infection [Recovered/Resolved]
  - Infection susceptibility increased [Unknown]
